FAERS Safety Report 7260599-7 (Version None)
Quarter: 2011Q1

REPORT INFORMATION
  Report Type: 
  Country: None (occurrence: None)
  Receive Date: 20110130
  Receipt Date: 20101110
  Transmission Date: 20110831
  Serious: No
  Sender: FDA-Public Use
  Company Number: US-ABBOTT-10P-163-0684640-00

PATIENT
  Age: 74 Year
  Sex: Female

DRUGS (14)
  1. LYRICA [Concomitant]
     Indication: NERVOUS SYSTEM DISORDER
  2. ALLEGRA D 24 HOUR [Concomitant]
     Indication: SINUS DISORDER
     Dosage: DAILY
  3. FERROUS SULFATE TAB [Concomitant]
     Indication: ANAEMIA
     Dosage: DAILY
  4. THYROXTINE [Concomitant]
     Indication: PRODUCT USED FOR UNKNOWN INDICATION
     Dosage: DAILY
  5. HUMIRA [Suspect]
     Indication: CROHN'S DISEASE
     Dates: start: 20100927
  6. PROPOXYTHENE [Concomitant]
     Indication: PAIN
  7. ZOLPIDEM [Concomitant]
     Indication: INSOMNIA
     Dosage: DAILY
  8. ALIGN [Concomitant]
     Indication: CROHN'S DISEASE
     Dosage: DAILY
  9. CENTRUM [Concomitant]
     Indication: PRODUCT USED FOR UNKNOWN INDICATION
     Dosage: DAILY
  10. LYRICA [Concomitant]
     Indication: SCIATICA
  11. ALENDRONATE SODIUM [Concomitant]
     Indication: OSTEOPOROSIS
     Dosage: WEEKLY
  12. DICYCLAMINE [Concomitant]
     Indication: FLATULENCE
     Dosage: DAILY AS NEEDED
  13. DICYCLAMINE [Concomitant]
     Indication: ABDOMINAL DISTENSION
  14. OMEPRAZOLE [Concomitant]
     Indication: GASTROOESOPHAGEAL REFLUX DISEASE

REACTIONS (4)
  - FEELING COLD [None]
  - PYREXIA [None]
  - PRODUCTIVE COUGH [None]
  - PAIN [None]
